FAERS Safety Report 6823343-0 (Version None)
Quarter: 2010Q3

REPORT INFORMATION
  Report Type: 
  Country: None (occurrence: None)
  Receive Date: 20100708
  Receipt Date: 20100615
  Transmission Date: 20110219
  Serious: No
  Sender: FDA-Public Use
  Company Number: US-TEVA-239942USA

PATIENT
  Age: 54 Year
  Sex: Female

DRUGS (3)
  1. COPAXONE [Suspect]
     Indication: MULTIPLE SCLEROSIS
     Route: 058
     Dates: start: 20090901
  2. ESCITALOPRAM OXALATE [Concomitant]
  3. TYLOX                              /00446701/ [Concomitant]

REACTIONS (3)
  - CHEST PAIN [None]
  - NAUSEA [None]
  - PARAESTHESIA [None]
